FAERS Safety Report 10379598 (Version 1)
Quarter: 2014Q3

REPORT INFORMATION
  Report Type: Spontaneous
  Country: CZ (occurrence: CZ)
  Receive Date: 20140812
  Receipt Date: 20140812
  Transmission Date: 20150326
  Serious: Yes (Other)
  Sender: FDA-Public Use
  Company Number: PHHY2014CZ096398

PATIENT
  Sex: Female

DRUGS (1)
  1. GILENYA [Suspect]
     Active Substance: FINGOLIMOD HYDROCHLORIDE
     Indication: MULTIPLE SCLEROSIS
     Route: 048
     Dates: start: 201310, end: 201404

REACTIONS (6)
  - Cerebral atrophy [Unknown]
  - Central nervous system lesion [Unknown]
  - Paraparesis [Unknown]
  - Optic neuritis [Unknown]
  - Hemiparesis [Unknown]
  - Multiple sclerosis relapse [Unknown]
